FAERS Safety Report 20365421 (Version 2)
Quarter: 2023Q1

REPORT INFORMATION
  Report Type: Other
  Country: US (occurrence: None)
  Receive Date: 20220122
  Receipt Date: 20230109
  Transmission Date: 20230418
  Serious: Yes (Hospitalization)
  Sender: FDA-Public Use
  Company Number: US-ROCHE-3006053

PATIENT
  Age: 47 Year
  Sex: Female
  Weight: 52.210 kg

DRUGS (6)
  1. OCREVUS [Suspect]
     Active Substance: OCRELIZUMAB
     Indication: Relapsing-remitting multiple sclerosis
     Dosage: ON 07/JAN/2021 SHE TOOK HER INFUSION
     Route: 042
     Dates: start: 2018
  2. BENADRYL [Concomitant]
     Active Substance: DIPHENHYDRAMINE HYDROCHLORIDE
  3. SELENIUM [Concomitant]
     Active Substance: SELENIUM
  4. GABAPENTIN [Concomitant]
     Active Substance: GABAPENTIN
  5. DAYSEE [Concomitant]
     Active Substance: ETHINYL ESTRADIOL\LEVONORGESTREL
  6. NITROFURANTOIN [Concomitant]
     Active Substance: NITROFURANTOIN

REACTIONS (10)
  - COVID-19 [Not Recovered/Not Resolved]
  - Weight decreased [Not Recovered/Not Resolved]
  - Diarrhoea [Recovered/Resolved]
  - White blood cell count increased [Unknown]
  - Platelet count increased [Unknown]
  - Crohn^s disease [Not Recovered/Not Resolved]
  - Sepsis [Recovered/Resolved]
  - Bacterial infection [Recovered/Resolved]
  - Dehydration [Recovered/Resolved]
  - Gastrointestinal pain [Recovered/Resolved]

NARRATIVE: CASE EVENT DATE: 20210501
